FAERS Safety Report 25208070 (Version 1)
Quarter: 2025Q2

REPORT INFORMATION
  Report Type: Spontaneous
  Country: US (occurrence: None)
  Receive Date: 20250416
  Receipt Date: 20250416
  Transmission Date: 20250717
  Serious: Yes (Other)
  Sender: FDA-CTU
  Company Number: None

PATIENT
  Age: 29 Year
  Sex: Female
  Weight: 58.5 kg

DRUGS (1)
  1. CLARISCAN [Suspect]
     Active Substance: GADOTERATE MEGLUMINE
     Indication: X-ray with contrast
     Dates: start: 20250318

REACTIONS (5)
  - Migraine [None]
  - Nausea [None]
  - Dizziness [None]
  - Muscle twitching [None]
  - Drug level increased [None]

NARRATIVE: CASE EVENT DATE: 20250318
